FAERS Safety Report 13150586 (Version 1)
Quarter: 2017Q1

REPORT INFORMATION
  Report Type: Spontaneous
  Country: IT (occurrence: IT)
  Receive Date: 20170125
  Receipt Date: 20170125
  Transmission Date: 20170428
  Serious: Yes (Other)
  Sender: FDA-Public Use
  Company Number: IT-TEVA-731642ACC

PATIENT
  Age: 64 Year
  Sex: Male
  Weight: 80 kg

DRUGS (5)
  1. ACETYLSALICYLIC ACID [Suspect]
     Active Substance: ASPIRIN
     Indication: PRODUCT USED FOR UNKNOWN INDICATION
     Dosage: 250 MILLIGRAM DAILY;
     Route: 048
     Dates: start: 20161130, end: 20161201
  2. AMLODIPINE [Concomitant]
     Active Substance: AMLODIPINE BESYLATE
     Indication: PRODUCT USED FOR UNKNOWN INDICATION
     Route: 048
     Dates: start: 20161129, end: 20161201
  3. HEPARIN [Suspect]
     Active Substance: HEPARIN SODIUM
     Indication: PRODUCT USED FOR UNKNOWN INDICATION
     Dosage: 9000 IU (INTERNATIONAL UNIT) DAILY;
     Dates: start: 20161130, end: 20161201
  4. TICAGRELOR [Suspect]
     Active Substance: TICAGRELOR
     Indication: ACUTE MYOCARDIAL INFARCTION
     Dosage: 270 MILLIGRAM DAILY;
     Route: 048
     Dates: start: 20161130, end: 20161201
  5. TICLOPIDINE [Suspect]
     Active Substance: TICLOPIDINE
     Indication: PRODUCT USED FOR UNKNOWN INDICATION
     Dosage: 250 MILLIGRAM DAILY;
     Route: 048
     Dates: start: 20161129, end: 20161201

REACTIONS (5)
  - Pain in extremity [Unknown]
  - Dysphagia [Unknown]
  - Facial paresis [Unknown]
  - Aphasia [Unknown]
  - Cerebral haemorrhage [Unknown]

NARRATIVE: CASE EVENT DATE: 20161201
